FAERS Safety Report 4567268-2 (Version None)
Quarter: 2005Q1

REPORT INFORMATION
  Report Type: 
  Country: None (occurrence: None)
  Receive Date: 20050127
  Receipt Date: 20050112
  Transmission Date: 20050727
  Serious: Yes (Hospitalization)
  Sender: FDA-Public Use
  Company Number: CIP04002553

PATIENT
  Age: 52 Year
  Sex: Female

DRUGS (6)
  1. ACTONEL [Suspect]
     Indication: OSTEOPENIA
     Dosage: 35 MG ONCE WEEKLY, ORAL
     Route: 048
     Dates: start: 20030401, end: 20041101
  2. CLIMARA ^BERLEX^ (ESTRADIOL) PATCH [Concomitant]
  3. FLONASE [Concomitant]
  4. ZOVIRAX (ACICLOVIR SODIUM) [Concomitant]
  5. ALAVERT (LORATADINE) [Concomitant]
  6. CLARITIN [Concomitant]

REACTIONS (24)
  - AURA [None]
  - BLOOD ALBUMIN DECREASED [None]
  - BLOOD ALKALINE PHOSPHATASE DECREASED [None]
  - BLOOD CALCIUM DECREASED [None]
  - BLOOD CHLORIDE DECREASED [None]
  - BLOOD CREATINE PHOSPHOKINASE INCREASED [None]
  - BLOOD GLUCOSE INCREASED [None]
  - BLOOD PRESSURE DECREASED [None]
  - BLOOD PRESSURE DIASTOLIC INCREASED [None]
  - COMA [None]
  - CONFUSIONAL STATE [None]
  - DIZZINESS [None]
  - FEELING ABNORMAL [None]
  - FOAMING AT MOUTH [None]
  - GRAND MAL CONVULSION [None]
  - HAEMATOCRIT DECREASED [None]
  - NAUSEA [None]
  - POSTICTAL STATE [None]
  - PROTEIN TOTAL DECREASED [None]
  - RED BLOOD CELL COUNT DECREASED [None]
  - STARING [None]
  - TONGUE BITING [None]
  - URINARY INCONTINENCE [None]
  - WEIGHT DECREASED [None]
